FAERS Safety Report 17233391 (Version 1)
Quarter: 2020Q1

REPORT INFORMATION
  Report Type: Spontaneous
  Country: GB (occurrence: GB)
  Receive Date: 20200104
  Receipt Date: 20200104
  Transmission Date: 20200409
  Serious: Yes (Other)
  Sender: FDA-Public Use
  Company Number: GB-TEVA-2019-GB-1161032

PATIENT
  Age: 60 Year
  Sex: Female
  Weight: 49 kg

DRUGS (25)
  1. CARBOCISTEINE [Concomitant]
     Active Substance: CARBOCYSTEINE
     Dosage: 2 DOSAGE FORMS TAKE 2- 3 TIMES DAILY
     Dates: start: 20190816
  2. PREDNISOLONE. [Concomitant]
     Active Substance: PREDNISOLONE
     Dosage: 6 DOSAGE FORMS PER DAY TAKE WITH FOOD (RESCUE PACK)
     Dates: start: 20190816
  3. RIVAROXABAN [Concomitant]
     Active Substance: RIVAROXABAN
     Dosage: 1 DOSAGE FORM PER DAY
     Dates: start: 20191015
  4. SODIUM CHLORIDE SOLUTION [Concomitant]
     Active Substance: SODIUM CHLORIDE
     Dosage: 2 DOSAGE FORMS PER DAY USE AS DIRECTED
     Dates: start: 20190910
  5. UNIPHYLLIN [Concomitant]
     Active Substance: THEOPHYLLINE ANHYDROUS
     Dosage: 2 DOSAGE FORMS PER DAY
     Dates: start: 20190816
  6. BRALTUS [Concomitant]
     Active Substance: TIOTROPIUM BROMIDE
     Dosage: 1 DOSAGE FORM PER DAY
     Dates: start: 20190816
  7. COLOMYCIN (COLISTIMETHATE SODIUM) [Concomitant]
     Active Substance: COLISTIMETHATE SODIUM
     Dosage: USE AS DIRECTED
     Dates: start: 20191126
  8. SALBUTAMOL [Concomitant]
     Active Substance: ALBUTEROL
     Dosage: 4 DOSAGE FORMS PER DAY
     Dates: start: 20190910
  9. RAMIPRIL. [Concomitant]
     Active Substance: RAMIPRIL
     Dosage: 2 DOSAGE FORMS PER DAY
     Dates: start: 20191015
  10. LEVOFLOXACIN. [Suspect]
     Active Substance: LEVOFLOXACIN
     Dosage: 500 MG
     Dates: start: 20190517
  11. NEBIVOLOL. [Concomitant]
     Active Substance: NEBIVOLOL
     Dosage: 1 DOSAGE FORM PER DAY
     Dates: start: 20190816
  12. LACTULOSE. [Concomitant]
     Active Substance: LACTULOSE
     Dosage: 20 ML PER DAY
     Dates: start: 20190507
  13. PARACETAMOL [Concomitant]
     Active Substance: ACETAMINOPHEN
     Dosage: 2 DOSAGE FORMS TO BE TAKEN EVERY 4-6 HOURS UP TO FOUR TIME...
     Dates: start: 20190816
  14. BECLOMETASONE [Concomitant]
     Active Substance: BECLOMETHASONE DIPROPIONATE
     Dosage: 4 DOSAGE FORMS PER DAY PUFFS
     Dates: start: 20191118
  15. SPIRONOLACTONE. [Concomitant]
     Active Substance: SPIRONOLACTONE
     Dosage: .5 DOSAGE FORMS DAILY; TO BE TAKEN EACH MORNING
     Dates: start: 20190816
  16. IVABRADINE [Concomitant]
     Active Substance: IVABRADINE
     Dosage: 2 DOSAGE FORMS PER DAY
     Dates: start: 20190816
  17. AMOXICILLIN. [Concomitant]
     Active Substance: AMOXICILLIN
     Dosage: 3 DOSAGE FORMS PER DAY
     Dates: start: 20190613
  18. VENTOLIN [Concomitant]
     Active Substance: ALBUTEROL SULFATE
     Dosage: 2 DOSAGE FORMS
     Route: 055
     Dates: start: 20190816
  19. SODIUM CHLORIDE. [Concomitant]
     Active Substance: SODIUM CHLORIDE
     Dosage: 4 DOSAGE FORMS PER DAY
     Dates: start: 20191113, end: 20191114
  20. NUTRITIONAL SUPPLEMENT [Concomitant]
     Active Substance: DIETARY SUPPLEMENT
     Dosage: AS DIRECTED, STRAWBERRY
     Dates: start: 20190816
  21. SACUBITRIL [Concomitant]
     Active Substance: SACUBITRIL
     Dosage: 2 DOSAGE FORMS PER DAY
     Dates: start: 20190816, end: 20191015
  22. FOSTAIR [Concomitant]
     Active Substance: BECLOMETHASONE\FORMOTEROL
     Dosage: 4 DOSAGE FORMS PER DAY PUFFS
     Route: 055
     Dates: start: 20190816
  23. NUTRITIONAL SUPPLEMENT [Concomitant]
     Active Substance: DIETARY SUPPLEMENT
     Dosage: AS DIRECTED, BANANA
     Dates: start: 20190816
  24. NYSTATIN. [Concomitant]
     Active Substance: NYSTATIN
     Dosage: 4 DOSAGE FORMS PER DAY
     Dates: start: 20191125
  25. FUROSEMIDE. [Concomitant]
     Active Substance: FUROSEMIDE
     Dosage: ALTERNATE DAYS THEN...
     Dates: start: 20190816

REACTIONS (6)
  - Tendon disorder [Unknown]
  - Malaise [Unknown]
  - Palpitations [Unknown]
  - Tendonitis [Recovered/Resolved]
  - Tendon pain [Unknown]
  - Dizziness [Unknown]

NARRATIVE: CASE EVENT DATE: 20190517
